FAERS Safety Report 14972899 (Version 1)
Quarter: 2018Q2

REPORT INFORMATION
  Report Type: Spontaneous
  Country: US (occurrence: US)
  Receive Date: 20180604
  Receipt Date: 20180604
  Transmission Date: 20180711
  Serious: Yes (Other)
  Sender: FDA-Public Use
  Company Number: None

PATIENT
  Age: 39 Year
  Sex: Female
  Weight: 49.9 kg

DRUGS (1)
  1. BRILLIANT ELIXIR, CHOCOLATE LOVER W/ KRATOM [Suspect]
     Active Substance: MITRAGYNINE\HERBALS
     Route: 048
     Dates: start: 20180421, end: 20180421

REACTIONS (9)
  - Job dissatisfaction [None]
  - Abdominal distension [None]
  - Vomiting [None]
  - Loss of personal independence in daily activities [None]
  - Migraine [None]
  - Loss of consciousness [None]
  - Vision blurred [None]
  - Visual impairment [None]
  - Abdominal pain upper [None]

NARRATIVE: CASE EVENT DATE: 20180422
